FAERS Safety Report 7148218-1 (Version None)
Quarter: 2010Q4

REPORT INFORMATION
  Report Type: 
  Country: None (occurrence: None)
  Receive Date: 20101209
  Receipt Date: 20101128
  Transmission Date: 20110411
  Serious: Yes (Other)
  Sender: FDA-Public Use
  Company Number: PHHY2008US15244

PATIENT
  Sex: Male

DRUGS (3)
  1. LIORESAL [Suspect]
     Indication: MUSCLE SPASTICITY
     Dosage: UNK,UNK
     Route: 037
  2. HYDROMORPHONE HYDROCHLORIDE [Concomitant]
     Dosage: UNK,UNK
     Route: 037
  3. CLONIDINE [Concomitant]
     Dosage: UNK,UNK
     Route: 037

REACTIONS (1)
  - MENINGITIS [None]
